FAERS Safety Report 9898431 (Version 2)
Quarter: 2014Q2

REPORT INFORMATION
  Report Type: Spontaneous
  Country: US (occurrence: US)
  Receive Date: 20140214
  Receipt Date: 20140611
  Transmission Date: 20141212
  Serious: Yes (Other)
  Sender: FDA-Public Use
  Company Number: US-PFIZER INC-2014041489

PATIENT
  Age: 57 Year
  Sex: Female
  Weight: 70 kg

DRUGS (4)
  1. LIPITOR [Suspect]
     Indication: LOW DENSITY LIPOPROTEIN INCREASED
     Dosage: 10 MG, DAILY
     Route: 048
     Dates: start: 20040517, end: 20070726
  2. LIPITOR [Suspect]
     Indication: CARDIOVASCULAR EVENT PROPHYLAXIS
     Dosage: 40 MG, DAILY
     Route: 048
     Dates: start: 20120115, end: 20120406
  3. LIPITOR [Suspect]
     Dosage: 80 MG, DAILY
     Route: 048
     Dates: start: 20120412, end: 20120922
  4. ATORVASTATIN CALCIUM [Suspect]
     Indication: HYPERLIPIDAEMIA
     Dosage: 80 MG, DAILY
     Dates: start: 20121116

REACTIONS (5)
  - Type 2 diabetes mellitus [Not Recovered/Not Resolved]
  - Paraesthesia [Unknown]
  - Muscle spasms [Unknown]
  - Vision blurred [Unknown]
  - Visual impairment [Not Recovered/Not Resolved]
